FAERS Safety Report 14352782 (Version 10)
Quarter: 2023Q2

REPORT INFORMATION
  Report Type: Spontaneous
  Country: US (occurrence: US)
  Receive Date: 20180104
  Receipt Date: 20230501
  Transmission Date: 20230722
  Serious: Yes (Other)
  Sender: FDA-Public Use
  Company Number: US-PFIZER INC-2017551393

PATIENT
  Age: 74 Year
  Sex: Female
  Weight: 61.288 kg

DRUGS (1)
  1. XELJANZ XR [Suspect]
     Active Substance: TOFACITINIB CITRATE
     Indication: Arthritis
     Dosage: 11 MG, DAILY
     Route: 048

REACTIONS (9)
  - Skin cancer [Recovered/Resolved]
  - Cardiac operation [Unknown]
  - Malaise [Not Recovered/Not Resolved]
  - Arthritis [Unknown]
  - Arthralgia [Unknown]
  - Pain in extremity [Unknown]
  - Raynaud^s phenomenon [Unknown]
  - Mood altered [Unknown]
  - Feeling abnormal [Unknown]

NARRATIVE: CASE EVENT DATE: 20210630
